FAERS Safety Report 5503135-5 (Version None)
Quarter: 2007Q4

REPORT INFORMATION
  Report Type: 
  Country: None (occurrence: None)
  Receive Date: 20071031
  Receipt Date: 20071023
  Transmission Date: 20080405
  Serious: Yes (Other)
  Sender: FDA-Public Use
  Company Number: US-ELI_LILLY_AND_COMPANY-US200710006141

PATIENT
  Age: 25 Year
  Sex: Male

DRUGS (1)
  1. XIGRIS [Suspect]
     Dosage: 24 D/F, UNK
     Dates: start: 20071001

REACTIONS (1)
  - CONVULSION [None]
